FAERS Safety Report 8694828 (Version 3)
Quarter: 2013Q4

REPORT INFORMATION
  Report Type: Spontaneous
  Country: US (occurrence: US)
  Receive Date: 20120731
  Receipt Date: 20131101
  Transmission Date: 20140711
  Serious: No
  Sender: FDA-Public Use
  Company Number: US-009507513-1207USA002735

PATIENT
  Age: 79 Year
  Sex: Male

DRUGS (1)
  1. PROPECIA [Suspect]
     Indication: ALOPECIA
     Dosage: 1 MG, QD
     Route: 048
     Dates: start: 20021115, end: 201101

REACTIONS (3)
  - Antisocial behaviour [Unknown]
  - Libido decreased [Recovered/Resolved]
  - Erectile dysfunction [Unknown]
